FAERS Safety Report 19444518 (Version 1)
Quarter: 2021Q2

REPORT INFORMATION
  Report Type: Other
  Country: US (occurrence: US)
  Receive Date: 20210621
  Receipt Date: 20210621
  Transmission Date: 20210717
  Serious: Yes (Death)
  Sender: FDA-Public Use
  Company Number: US-ROCHE-2849998

PATIENT
  Age: 71 Year
  Sex: Female

DRUGS (3)
  1. XELODA [Suspect]
     Active Substance: CAPECITABINE
     Route: 048
  2. XELODA [Suspect]
     Active Substance: CAPECITABINE
     Dosage: 3 TABLET EVERY 12 HOURS FOR 14 DAYS
     Route: 048
  3. XELODA [Suspect]
     Active Substance: CAPECITABINE
     Indication: BREAST CANCER FEMALE
     Dosage: 3 TABLET EVERY 12 HOURS FOR 14 DAYS
     Route: 048
     Dates: start: 20210422

REACTIONS (1)
  - Death [Fatal]

NARRATIVE: CASE EVENT DATE: 20210611
